FAERS Safety Report 5624372-5 (Version None)
Quarter: 2008Q1

REPORT INFORMATION
  Report Type: 
  Country: None (occurrence: None)
  Receive Date: 20080213
  Receipt Date: 20070410
  Transmission Date: 20080703
  Serious: Yes (Hospitalization, Other)
  Sender: FDA-Public Use
  Company Number: US-ASTRAZENECA-2007UW02090

PATIENT
  Age: 50 Year
  Sex: Female
  Weight: 136.4 kg

DRUGS (11)
  1. SEROQUEL [Suspect]
     Indication: SCHIZOAFFECTIVE DISORDER
     Dosage: 100 MG - 300 MG
     Route: 048
     Dates: start: 19990101
  2. SEROQUEL [Suspect]
     Indication: MAJOR DEPRESSION
     Dosage: 100 MG - 300 MG
     Route: 048
     Dates: start: 19990101
  3. SEROQUEL [Suspect]
     Indication: BIPOLAR DISORDER
     Dosage: 100 MG - 300 MG
     Route: 048
     Dates: start: 19990101
  4. THYROID PILLS [Concomitant]
     Indication: WEIGHT CONTROL
     Route: 048
     Dates: start: 19620101, end: 19670101
  5. UNKNOWN DIET PILLS [Concomitant]
     Indication: WEIGHT CONTROL
     Route: 048
     Dates: start: 19680101, end: 19700101
  6. ABILIFY [Concomitant]
     Dosage: 15 MG - 40 MG
     Route: 048
     Dates: end: 20030601
  7. GEODON [Concomitant]
     Dosage: 20 MG - 500 MG
     Route: 048
     Dates: start: 20030601, end: 20051101
  8. HALDOL [Concomitant]
     Route: 048
     Dates: start: 20020301, end: 20040301
  9. HALDOL [Concomitant]
     Route: 014
     Dates: start: 20020301, end: 20040301
  10. ZOLOFT [Concomitant]
     Dosage: 25 MG - 200 MG
     Route: 048
     Dates: start: 19970901
  11. WELLBUTRIN [Concomitant]
     Dosage: 100 MG - 200 MG
     Route: 048
     Dates: start: 20030601, end: 20030801

REACTIONS (10)
  - CARDIAC FAILURE CONGESTIVE [None]
  - CHOLECYSTECTOMY [None]
  - CONVULSION [None]
  - EPISTAXIS [None]
  - INFECTION [None]
  - ONYCHOMYCOSIS [None]
  - OVERDOSE [None]
  - RHINITIS [None]
  - SUICIDAL IDEATION [None]
  - TYPE 2 DIABETES MELLITUS [None]
